FAERS Safety Report 7693217-4 (Version None)
Quarter: 2011Q3

REPORT INFORMATION
  Report Type: 
  Country: None (occurrence: None)
  Receive Date: 20110815
  Receipt Date: 20110711
  Transmission Date: 20111222
  Serious: Yes (Death)
  Sender: FDA-Public Use
  Company Number: CN-ACCORD-010271

PATIENT

DRUGS (5)
  1. L-ASPARAGINASE (L-ASPARAGINASE) [Suspect]
     Indication: NATURAL KILLER-CELL LEUKAEMIA
  2. ETOPOSIDE [Suspect]
     Indication: NATURAL KILLER-CELL LEUKAEMIA
  3. MITOXANTRONE [Suspect]
     Indication: NATURAL KILLER-CELL LEUKAEMIA
  4. METHOTREXATE [Suspect]
     Indication: NATURAL KILLER-CELL LEUKAEMIA
  5. CYTARABINE [Suspect]
     Indication: NATURAL KILLER-CELL LEUKAEMIA

REACTIONS (1)
  - PNEUMONIA [None]
